FAERS Safety Report 24356041 (Version 1)
Quarter: 2024Q3

REPORT INFORMATION
  Report Type: Report from Study
  Country: US (occurrence: US)
  Receive Date: 20240924
  Receipt Date: 20240924
  Transmission Date: 20241017
  Serious: Yes (Other)
  Sender: ABBVIE
  Company Number: US-ABBVIE-5843453

PATIENT
  Sex: Female

DRUGS (2)
  1. RINVOQ [Suspect]
     Active Substance: UPADACITINIB
     Indication: Colitis ulcerative
     Dosage: FORM STRENGTH 45 MG, LAST ADMIN DATE 2024?FOR 12 WEEKS (3 MONTHS) THEN 15MG 1 TAB DAILY BY MOUTH ...
     Route: 048
     Dates: start: 20240601
  2. RINVOQ [Suspect]
     Active Substance: UPADACITINIB
     Indication: Colitis ulcerative
     Dosage: INDUCTION DOSING RECOMMENDED FOR 8 WEEKS, FIRST ADMIN DATE 2024
     Route: 048

REACTIONS (18)
  - Internal haemorrhage [Unknown]
  - Abdominal pain [Recovered/Resolved]
  - Therapeutic product effect incomplete [Unknown]
  - Anorectal swelling [Unknown]
  - Arthralgia [Not Recovered/Not Resolved]
  - Insomnia [Unknown]
  - Haematochezia [Unknown]
  - Urinary tract infection [Unknown]
  - Frequent bowel movements [Unknown]
  - Anal fissure [Unknown]
  - Inflammation [Unknown]
  - Defaecation urgency [Unknown]
  - Flatulence [Unknown]
  - Pain [Unknown]
  - Decreased appetite [Unknown]
  - Abdominal distension [Unknown]
  - Diarrhoea [Unknown]
  - Mucous stools [Unknown]

NARRATIVE: CASE EVENT DATE: 20240101
